FAERS Safety Report 5691603-5 (Version None)
Quarter: 2008Q2

REPORT INFORMATION
  Report Type: 
  Country: None (occurrence: None)
  Receive Date: 20080402
  Receipt Date: 20080319
  Transmission Date: 20081010
  Serious: Yes (Other)
  Sender: FDA-Public Use
  Company Number: PHEH2008US02972

PATIENT
  Sex: Male

DRUGS (2)
  1. GLEEVEC [Suspect]
     Route: 048
     Dates: start: 20021101
  2. PLAVIX [Concomitant]
     Dates: start: 20050101

REACTIONS (3)
  - CHROMOSOME ANALYSIS ABNORMAL [None]
  - POLYNEUROPATHY [None]
  - RENAL FAILURE [None]
